FAERS Safety Report 16085193 (Version 1)
Quarter: 2019Q2

REPORT INFORMATION
  Report Type: Spontaneous
  Country: US (occurrence: US)
  Receive Date: 20190318
  Receipt Date: 20190318
  Transmission Date: 20190711
  Serious: No
  Sender: FDA-Public Use
  Company Number: None

PATIENT
  Age: 38 Year
  Sex: Female
  Weight: 67.5 kg

DRUGS (4)
  1. BENADRYL 50MG PO QHS [Concomitant]
     Dates: start: 20190214, end: 20190221
  2. TRAZODONE 50MG PO QHSPRN SLEEP. MAY REPEAT X1 IF INEFFECTIVE AFTER 1HR [Concomitant]
     Dates: start: 20190215, end: 20190218
  3. ZYPREXA 15MG PO QHS [Concomitant]
     Dates: start: 20190215, end: 20190217
  4. GABAPENTIN. [Suspect]
     Active Substance: GABAPENTIN
     Route: 048
     Dates: start: 20190217, end: 20190217

REACTIONS (1)
  - Somnolence [None]

NARRATIVE: CASE EVENT DATE: 20190217
